FAERS Safety Report 25926049 (Version 1)
Quarter: 2025Q4

REPORT INFORMATION
  Report Type: Spontaneous
  Country: US (occurrence: US)
  Receive Date: 20251015
  Receipt Date: 20251015
  Transmission Date: 20260118
  Serious: Yes (Other)
  Sender: ELI LILLY AND COMPANY
  Company Number: US-ELI_LILLY_AND_COMPANY-US202510006140

PATIENT
  Weight: 5.442 kg

DRUGS (4)
  1. TALTZ [Suspect]
     Active Substance: IXEKIZUMAB
     Indication: Product used for unknown indication
     Dosage: UNK MG, UNKNOWN
     Route: 064
  2. TALTZ [Suspect]
     Active Substance: IXEKIZUMAB
     Indication: Product used for unknown indication
     Dosage: UNK MG, UNKNOWN
     Route: 064
  3. TALTZ [Suspect]
     Active Substance: IXEKIZUMAB
     Dosage: UNK MG, UNKNOWN
     Route: 063
  4. TALTZ [Suspect]
     Active Substance: IXEKIZUMAB
     Dosage: UNK MG, UNKNOWN
     Route: 063

REACTIONS (4)
  - Growth retardation [Recovered/Resolved]
  - Cardiac murmur [Recovered/Resolved]
  - Foetal exposure during pregnancy [Recovered/Resolved]
  - Exposure via breast milk [Unknown]

NARRATIVE: CASE EVENT DATE: 20250128
